FAERS Safety Report 17739873 (Version 1)
Quarter: 2020Q2

REPORT INFORMATION
  Report Type: Spontaneous
  Country: US (occurrence: US)
  Receive Date: 20200502
  Receipt Date: 20200502
  Transmission Date: 20200714
  Serious: No
  Sender: FDA-Public Use
  Company Number: None

PATIENT
  Age: 37 Year
  Sex: Female
  Weight: 76.5 kg

DRUGS (18)
  1. ABILIFY [Concomitant]
     Active Substance: ARIPIPRAZOLE
  2. LINZESS [Concomitant]
     Active Substance: LINACLOTIDE
  3. VYLEESI [Suspect]
     Active Substance: BREMELANOTIDE ACETATE
     Indication: LIBIDO DECREASED
     Dosage: ?          QUANTITY:1 INJECTION(S);OTHER FREQUENCY:4 TIMES MONTH;?
     Route: 058
     Dates: start: 20200425, end: 20200502
  4. LEXAPRO [Concomitant]
     Active Substance: ESCITALOPRAM OXALATE
  5. CAFFEINE. [Concomitant]
     Active Substance: CAFFEINE
  6. CALCIUM [Concomitant]
     Active Substance: CALCIUM
  7. MAGNESIUM [Concomitant]
     Active Substance: MAGNESIUM
  8. ZYRTEC [Concomitant]
     Active Substance: CETIRIZINE HYDROCHLORIDE
  9. GAVISCON [Concomitant]
     Active Substance: ALUMINUM HYDROXIDE\MAGNESIUM CARBONATE
  10. ADDYI [Concomitant]
     Active Substance: FLIBANSERIN
  11. ZINC. [Concomitant]
     Active Substance: ZINC
  12. PROBIOTIC [Concomitant]
     Active Substance: PROBIOTICS NOS
  13. SYNTHROID [Concomitant]
     Active Substance: LEVOTHYROXINE SODIUM
  14. TYLENOL [Concomitant]
     Active Substance: ACETAMINOPHEN
  15. TUMS [Concomitant]
     Active Substance: CALCIUM CARBONATE
  16. WELLBUTRIN [Concomitant]
     Active Substance: BUPROPION HYDROCHLORIDE
  17. PROBIOTIC [Concomitant]
     Active Substance: PROBIOTICS NOS
  18. KLONOPIN [Concomitant]
     Active Substance: CLONAZEPAM

REACTIONS (5)
  - Chest pain [None]
  - Back pain [None]
  - Adverse drug reaction [None]
  - Flushing [None]
  - Feeling hot [None]

NARRATIVE: CASE EVENT DATE: 20200502
